FAERS Safety Report 7560074-6 (Version None)
Quarter: 2011Q2

REPORT INFORMATION
  Report Type: 
  Country: None (occurrence: None)
  Receive Date: 20110621
  Receipt Date: 20110616
  Transmission Date: 20111010
  Serious: Yes (Hospitalization, Disabling)
  Sender: FDA-Public Use
  Company Number: US-ABBOTT-11P-163-0708085-00

PATIENT
  Sex: Female
  Weight: 59.474 kg

DRUGS (2)
  1. PREDNISONE [Concomitant]
     Indication: CROHN'S DISEASE
  2. HUMIRA [Suspect]
     Indication: CROHN'S DISEASE
     Dates: start: 20100501

REACTIONS (3)
  - ABDOMINAL PAIN [None]
  - COLITIS [None]
  - CROHN'S DISEASE [None]
